FAERS Safety Report 16194259 (Version 3)
Quarter: 2019Q3

REPORT INFORMATION
  Report Type: Spontaneous
  Country: US (occurrence: US)
  Receive Date: 20190414
  Receipt Date: 20190926
  Transmission Date: 20191004
  Serious: Yes (Hospitalization, Other)
  Sender: FDA-Public Use
  Company Number: US-BIOGEN-2019BI00724328

PATIENT
  Sex: Female

DRUGS (2)
  1. AVONEX [Suspect]
     Active Substance: INTERFERON BETA-1A
     Indication: MULTIPLE SCLEROSIS
     Route: 030
     Dates: start: 20000201, end: 201712
  2. AVONEX [Suspect]
     Active Substance: INTERFERON BETA-1A
     Route: 065
     Dates: start: 201812

REACTIONS (7)
  - Myocardial infarction [Recovered/Resolved]
  - Nephrolithiasis [Recovered/Resolved]
  - Multiple sclerosis relapse [Recovered/Resolved]
  - Seizure [Recovered/Resolved]
  - Kidney infection [Recovered/Resolved]
  - Gastrointestinal disorder [Recovered/Resolved]
  - Bladder disorder [Recovered/Resolved]

NARRATIVE: CASE EVENT DATE: 2013
